FAERS Safety Report 6277491-7 (Version None)
Quarter: 2009Q2

REPORT INFORMATION
  Report Type: 
  Country: None (occurrence: None)
  Receive Date: 20090604
  Receipt Date: 20090604
  Transmission Date: 20091009
  Serious: No
  Sender: FDA-Public Use
  Company Number: None

PATIENT
  Age: 32 Year
  Sex: Female
  Weight: 69.8539 kg

DRUGS (1)
  1. LEVULAN [Suspect]
     Indication: PRECANCEROUS CELLS PRESENT
     Dosage: 1 TREATMENT 1 HOUR TOP
     Route: 061
     Dates: start: 20090602, end: 20090602

REACTIONS (8)
  - BURNING SENSATION [None]
  - ERYTHEMA [None]
  - FACIAL PAIN [None]
  - IATROGENIC INJURY [None]
  - PAIN [None]
  - SKIN DISCOLOURATION [None]
  - SKIN HYPERPIGMENTATION [None]
  - SWELLING FACE [None]
